FAERS Safety Report 5601099-7 (Version None)
Quarter: 2008Q1

REPORT INFORMATION
  Report Type: 
  Country: None (occurrence: None)
  Receive Date: 20080124
  Receipt Date: 20080115
  Transmission Date: 20080703
  Serious: Yes (Hospitalization, Other)
  Sender: FDA-Public Use
  Company Number: US-ASTRAZENECA-2006UW27335

PATIENT
  Age: 16559 Day
  Sex: Female
  Weight: 99.1 kg

DRUGS (8)
  1. SEROQUEL [Suspect]
     Indication: BIPOLAR DISORDER
     Dosage: 600 MG, 900 MG
     Route: 048
     Dates: start: 20030603, end: 20060414
  2. SEROQUEL [Suspect]
     Indication: SCHIZOPHRENIA
     Dosage: 600 MG, 900 MG
     Route: 048
     Dates: start: 20030603, end: 20060414
  3. ABILIFY [Concomitant]
     Dates: start: 20050101
  4. GEODON [Concomitant]
  5. THORAZINE [Concomitant]
     Dates: start: 20040101
  6. ZYPREXA [Concomitant]
     Dates: start: 20030101
  7. PAXIL [Concomitant]
  8. XANAX [Concomitant]

REACTIONS (11)
  - ANAEMIA [None]
  - DIABETES MELLITUS [None]
  - DIABETIC KETOACIDOSIS [None]
  - GASTROINTESTINAL INFECTION [None]
  - HYPERLIPIDAEMIA [None]
  - HYPERTENSION [None]
  - HYPOTHYROIDISM [None]
  - MIGRAINE [None]
  - PANCREATITIS [None]
  - URINARY TRACT INFECTION [None]
  - VAGINAL INFECTION [None]
